FAERS Safety Report 19944644 (Version 1)
Quarter: 2021Q4

REPORT INFORMATION
  Report Type: 
  Country: US (occurrence: US)
  Receive Date: 20211011
  Receipt Date: 20211011
  Transmission Date: 20220303
  Serious: No
  Sender: FDA-Public Use
  Company Number: US-C B FLEET CO INC-202107-US-002545

PATIENT
  Sex: Female

DRUGS (1)
  1. MONISTAT 3 COMBINATION PACK [Suspect]
     Active Substance: MICONAZOLE NITRATE
     Indication: Product used for unknown indication
     Dosage: ONCE VAGINALLY
     Route: 067
     Dates: start: 20210721, end: 20210721

REACTIONS (3)
  - Vaginal haemorrhage [Unknown]
  - Product used for unknown indication [None]
  - Intentional product misuse [None]
